FAERS Safety Report 4476294-3 (Version None)
Quarter: 2004Q4

REPORT INFORMATION
  Report Type: 
  Country: None (occurrence: None)
  Receive Date: 20041016
  Receipt Date: 20040901
  Transmission Date: 20050328
  Serious: Yes (Disabling, Other)
  Sender: FDA-Public Use
  Company Number: US-MERCK-0409USA00141

PATIENT
  Age: 46 Year
  Sex: Male
  Weight: 88 kg

DRUGS (5)
  1. ASPIRIN [Concomitant]
     Route: 048
     Dates: start: 20030207
  2. ZETIA [Suspect]
     Indication: BLOOD CHOLESTEROL INCREASED
     Route: 048
     Dates: start: 20031202, end: 20040730
  3. OMEGA-3 MARINE TRIGLYCERIDES [Concomitant]
     Indication: BLOOD CHOLESTEROL INCREASED
     Route: 048
     Dates: start: 20030207
  4. INDERAL [Concomitant]
     Route: 048
     Dates: start: 20030804
  5. UBIDECARENONE [Concomitant]
     Indication: BLOOD CHOLESTEROL INCREASED
     Route: 048
     Dates: start: 20030207

REACTIONS (7)
  - BLOOD ALKALINE PHOSPHATASE INCREASED [None]
  - GOITRE [None]
  - GYNAECOMASTIA [None]
  - HEADACHE [None]
  - HYPERTHYROIDISM [None]
  - TREMOR [None]
  - WEIGHT DECREASED [None]
